FAERS Safety Report 15019032 (Version 3)
Quarter: 2018Q3

REPORT INFORMATION
  Report Type: Spontaneous
  Country: US (occurrence: US)
  Receive Date: 20180616
  Receipt Date: 20180703
  Transmission Date: 20181010
  Serious: Yes (Hospitalization, Other)
  Sender: FDA-Public Use
  Company Number: US-AMGEN-USASP2018072164

PATIENT
  Age: 58 Year
  Sex: Female
  Weight: 61.22 kg

DRUGS (14)
  1. XGEVA [Suspect]
     Active Substance: DENOSUMAB
     Indication: PLASMA CELL MYELOMA
     Dosage: 120 MG, UNK
     Route: 058
     Dates: start: 20180305
  2. REVLIMID [Concomitant]
     Active Substance: LENALIDOMIDE
     Indication: PLASMA CELL MYELOMA
     Dosage: 25 MG, QD (D1?21 Q 28)
     Dates: start: 20170911
  3. ASA [Concomitant]
     Active Substance: ASPIRIN
     Dosage: 325 MG, QD, HOLD FOR PLATELETS LESS THAN 30,000
  4. DECADRON [Concomitant]
     Active Substance: DEXAMETHASONE
     Dosage: 40 MG, QWK
  5. VELCADE [Concomitant]
     Active Substance: BORTEZOMIB
     Indication: PLASMA CELL MYELOMA
     Dosage: 2.2 MG, QWK, ON HOLD FOR PLATELETS LESS THAN 30,000
     Route: 058
     Dates: start: 20170418
  6. TUMS [Concomitant]
     Active Substance: CALCIUM CARBONATE
     Dosage: 4 PILLS, QD
  7. OXYCODONE [Concomitant]
     Active Substance: OXYCODONE
     Indication: PLASMA CELL MYELOMA
     Dosage: 10 MG, QID (EVERY 6 HOURS WHEN NECESSARY)
  8. AMLODIPINE [Concomitant]
     Active Substance: AMLODIPINE BESYLATE
     Indication: HYPERTENSION
     Dosage: 5 MG, QD
  9. VALTREX [Concomitant]
     Active Substance: VALACYCLOVIR HYDROCHLORIDE
     Dosage: 500 MG, QD
  10. XGEVA [Suspect]
     Active Substance: DENOSUMAB
     Dosage: 60 MG, UNK
     Route: 058
     Dates: end: 20180305
  11. DURAGESIC [Concomitant]
     Active Substance: FENTANYL
     Dosage: 75 MUG, EVERY 3 DAYS
  12. SODIUM BICARBONATE. [Concomitant]
     Active Substance: SODIUM BICARBONATE
     Indication: METABOLIC ACIDOSIS
     Dosage: 650 MG, BID
  13. PROTONIX [Concomitant]
     Active Substance: PANTOPRAZOLE SODIUM
     Indication: GASTROOESOPHAGEAL REFLUX DISEASE
     Dosage: 40 MG, QD
  14. FENTANYL. [Concomitant]
     Active Substance: FENTANYL
     Indication: PLASMA CELL MYELOMA
     Dosage: 75 MCG, UNK

REACTIONS (11)
  - Metabolic acidosis [Unknown]
  - Diarrhoea [Unknown]
  - Anaemia [Unknown]
  - Cytopenia [Unknown]
  - Sleep apnoea syndrome [Unknown]
  - Hypocalcaemia [Not Recovered/Not Resolved]
  - Thrombophlebitis superficial [Unknown]
  - Off label use [Unknown]
  - Ischaemic cardiomyopathy [Unknown]
  - Treatment noncompliance [Unknown]
  - Plasma cell myeloma [Unknown]

NARRATIVE: CASE EVENT DATE: 2018
